FAERS Safety Report 23453949 (Version 4)
Quarter: 2024Q3

REPORT INFORMATION
  Report Type: Spontaneous
  Country: US (occurrence: US)
  Receive Date: 20240130
  Receipt Date: 20240925
  Transmission Date: 20241017
  Serious: Yes (Death, Life-Threatening, Hospitalization, Other)
  Sender: AUROBINDO
  Company Number: US-MLMSERVICE-20240111-4768282-1

PATIENT
  Age: 36 Year
  Sex: Male

DRUGS (3)
  1. METOPROLOL [Suspect]
     Active Substance: METOPROLOL
     Indication: Tachycardia
     Dosage: UNK
     Route: 065
  2. PREDNISONE [Suspect]
     Active Substance: PREDNISONE
     Indication: Thyrotoxic crisis
     Dosage: UNK
     Route: 065
  3. METHIMAZOLE [Suspect]
     Active Substance: METHIMAZOLE
     Indication: Tachycardia
     Dosage: UNK
     Route: 065

REACTIONS (7)
  - Ischaemic hepatitis [Fatal]
  - Intestinal ischaemia [Fatal]
  - Tachycardia [Fatal]
  - Acute kidney injury [Fatal]
  - Acute pulmonary oedema [Fatal]
  - Cardiac arrest [Fatal]
  - Drug ineffective [Unknown]
